FAERS Safety Report 7140939-X (Version None)
Quarter: 2010Q4

REPORT INFORMATION
  Report Type: 
  Country: None (occurrence: None)
  Receive Date: 20101201
  Receipt Date: 20101201
  Transmission Date: 20110411
  Serious: Yes (Other)
  Sender: FDA-Public Use
  Company Number: None

PATIENT
  Age: 34 Year
  Sex: Female
  Weight: 79.3795 kg

DRUGS (2)
  1. PROPOXYPHENE HCL AND ACETAMINOPHEN [Suspect]
     Indication: ABSCESS
     Dosage: 1 TABLET EVERY 4 HRS PO
     Route: 048
     Dates: start: 20101111, end: 20101114
  2. PROPOXYPHENE HCL AND ACETAMINOPHEN [Suspect]
     Indication: PAIN
     Dosage: 1 TABLET EVERY 4 HRS PO
     Route: 048
     Dates: start: 20101111, end: 20101114

REACTIONS (5)
  - CARDIAC DISORDER [None]
  - COMA [None]
  - DIZZINESS [None]
  - DYSPNOEA [None]
  - MALAISE [None]
